FAERS Safety Report 9971096 (Version 1)
Quarter: 2014Q1

REPORT INFORMATION
  Report Type: Spontaneous
  Country: US (occurrence: US)
  Receive Date: 20140306
  Receipt Date: 20140306
  Transmission Date: 20141002
  Serious: No
  Sender: FDA-Public Use
  Company Number: US-ABBVIE-13P-163-1147957-00

PATIENT
  Age: 29 Year
  Sex: Female
  Weight: 90.8 kg

DRUGS (2)
  1. HUMIRA [Suspect]
     Indication: PSORIASIS
     Dates: start: 2006
  2. DEPO PROVERA [Concomitant]
     Indication: CONTRACEPTION

REACTIONS (2)
  - Device malfunction [Not Recovered/Not Resolved]
  - Injection site vesicles [Recovered/Resolved]
